FAERS Safety Report 9061001 (Version 2)
Quarter: 2013Q2

REPORT INFORMATION
  Report Type: Spontaneous
  Country: US (occurrence: US)
  Receive Date: 20130213
  Receipt Date: 20130626
  Transmission Date: 20140414
  Serious: Yes (Hospitalization)
  Sender: FDA-Public Use
  Company Number: US-BIOGENIDEC-2013BI012804

PATIENT
  Age: 55 Year
  Sex: Female

DRUGS (1)
  1. AVONEX [Suspect]
     Indication: MULTIPLE SCLEROSIS
     Route: 030
     Dates: start: 20010202, end: 20120501

REACTIONS (5)
  - Hepatic pain [Recovered/Resolved]
  - Liver disorder [Unknown]
  - Diabetes mellitus [Not Recovered/Not Resolved]
  - Blindness [Recovered/Resolved]
  - Influenza like illness [Recovered/Resolved]
